FAERS Safety Report 26134361 (Version 1)
Quarter: 2025Q4

REPORT INFORMATION
  Report Type: Spontaneous
  Country: US (occurrence: US)
  Receive Date: 20251209
  Receipt Date: 20251209
  Transmission Date: 20260117
  Serious: No
  Sender: AUROBINDO
  Company Number: US-AUROBINDO-AUR-APL-2025-005295

PATIENT
  Age: 83 Year
  Sex: Female

DRUGS (1)
  1. GUAIFENESIN [Suspect]
     Active Substance: GUAIFENESIN
     Indication: Product used for unknown indication
     Dosage: 1 DOSAGE FORM, ONCE A DAY
     Route: 065
     Dates: start: 20250117

REACTIONS (3)
  - Abdominal pain upper [Unknown]
  - Muscle spasms [Unknown]
  - Insomnia [Unknown]

NARRATIVE: CASE EVENT DATE: 20250117
